FAERS Safety Report 5831121-4 (Version None)
Quarter: 2008Q3

REPORT INFORMATION
  Report Type: 
  Country: None (occurrence: None)
  Receive Date: 20080801
  Receipt Date: 20080414
  Transmission Date: 20090109
  Serious: No
  Sender: FDA-Public Use
  Company Number: US-BRISTOL-MYERS SQUIBB COMPANY-14150130

PATIENT

DRUGS (3)
  1. COUMADIN [Suspect]
  2. TOPROL-XL [Suspect]
  3. AGGRENOX [Concomitant]

REACTIONS (1)
  - ADVERSE EVENT [None]
